FAERS Safety Report 14677098 (Version 1)
Quarter: 2018Q1

REPORT INFORMATION
  Report Type: Spontaneous
  Country: US (occurrence: US)
  Receive Date: 20180323
  Receipt Date: 20180323
  Transmission Date: 20180509
  Serious: Yes (Hospitalization)
  Sender: FDA-Public Use
  Company Number: None

PATIENT
  Age: 60 Year
  Sex: Female
  Weight: 52.4 kg

DRUGS (4)
  1. CAMPTOSAR [Suspect]
     Active Substance: IRINOTECAN HYDROCHLORIDE
     Dates: end: 20171122
  2. LEUCOVORIN CALCIUM. [Suspect]
     Active Substance: LEUCOVORIN CALCIUM
     Dates: end: 20171122
  3. ELOXATIN [Suspect]
     Active Substance: OXALIPLATIN
     Dates: end: 20171122
  4. 5-FLUOROURACIL (5-FU) [Suspect]
     Active Substance: FLUOROURACIL
     Dates: end: 20171122

REACTIONS (3)
  - Liver abscess [None]
  - Portal vein stenosis [None]
  - Mesenteric artery stenosis [None]

NARRATIVE: CASE EVENT DATE: 20180226
